FAERS Safety Report 6814928-6 (Version None)
Quarter: 2010Q3

REPORT INFORMATION
  Report Type: 
  Country: None (occurrence: None)
  Receive Date: 20100702
  Receipt Date: 20100625
  Transmission Date: 20110219
  Serious: Yes (Hospitalization)
  Sender: FDA-Public Use
  Company Number: US-ROCHE-712204

PATIENT
  Age: 53 Year
  Sex: Male
  Weight: 65.8 kg

DRUGS (5)
  1. KLONOPIN [Suspect]
     Indication: PRODUCT USED FOR UNKNOWN INDICATION
     Dosage: 2 MG EVERY MORNING, 0.5-1.5 MG AT BEDTIME
     Route: 065
  2. GEODON [Suspect]
     Indication: MAJOR DEPRESSION
     Dosage: OTHER INDICATION: ANXIETY
     Route: 048
     Dates: start: 20090512
  3. GEODON [Suspect]
     Route: 048
     Dates: start: 20100127, end: 20100127
  4. PRISTIQ [Concomitant]
  5. REQUIP [Concomitant]

REACTIONS (2)
  - ELECTROCARDIOGRAM QT PROLONGED [None]
  - SUICIDE ATTEMPT [None]
